FAERS Safety Report 20526289 (Version 2)
Quarter: 2022Q2

REPORT INFORMATION
  Report Type: Report from Study
  Country: US (occurrence: US)
  Receive Date: 20220228
  Receipt Date: 20220523
  Transmission Date: 20220721
  Serious: No
  Sender: FDA-Public Use
  Company Number: US-NOVARTISTESTPH-NVSC2022US046212

PATIENT
  Sex: Male

DRUGS (1)
  1. KESIMPTA [Suspect]
     Active Substance: OFATUMUMAB
     Indication: Product used for unknown indication
     Dosage: UNK
     Route: 065

REACTIONS (8)
  - Nausea [Unknown]
  - Injection site pain [Unknown]
  - Headache [Unknown]
  - Taste disorder [Unknown]
  - Back pain [Unknown]
  - Fatigue [Unknown]
  - Mood swings [Unknown]
  - Personality change [Unknown]
